FAERS Safety Report 13469944 (Version 1)
Quarter: 2017Q2

REPORT INFORMATION
  Report Type: Spontaneous
  Country: US (occurrence: US)
  Receive Date: 20170422
  Receipt Date: 20170422
  Transmission Date: 20170830
  Serious: No
  Sender: FDA-Public Use
  Company Number: US-STALLERGENES SAS-1065723

PATIENT
  Age: 38 Year
  Sex: Female

DRUGS (3)
  1. BUPROPION. [Concomitant]
     Active Substance: BUPROPION
  2. ORALAIR [Suspect]
     Active Substance: ANTHOXANTHUM ODORATUM POLLEN\DACTYLIS GLOMERATA POLLEN\LOLIUM PERENNE POLLEN\PHLEUM PRATENSE POLLEN\POA PRATENSIS POLLEN
     Route: 060
     Dates: start: 201702
  3. IRON [Concomitant]
     Active Substance: IRON

REACTIONS (2)
  - Pruritus [Recovered/Resolved]
  - Drug dose omission [Recovered/Resolved]

NARRATIVE: CASE EVENT DATE: 201702
